FAERS Safety Report 9427508 (Version 1)
Quarter: 2013Q3

REPORT INFORMATION
  Report Type: Report from Study
  Country: US (occurrence: US)
  Receive Date: 20130730
  Receipt Date: 20130730
  Transmission Date: 20140515
  Serious: No
  Sender: FDA-Public Use
  Company Number: US-ABBOTT-12P-163-0966440-00

PATIENT
  Sex: Female
  Weight: 109.87 kg

DRUGS (3)
  1. NIASPAN (COATED) 500MG [Suspect]
     Indication: PRODUCT USED FOR UNKNOWN INDICATION
     Dosage: AT NIGHT
     Dates: start: 20120801
  2. NEUROTIN [Concomitant]
     Indication: MIGRAINE
  3. ZEGERID [Concomitant]
     Indication: PRODUCT USED FOR UNKNOWN INDICATION

REACTIONS (2)
  - Blood glucose decreased [Recovered/Resolved]
  - Asthenia [Recovered/Resolved]
